FAERS Safety Report 20530141 (Version 3)
Quarter: 2022Q2

REPORT INFORMATION
  Report Type: Report from Study
  Country: US (occurrence: US)
  Receive Date: 20220301
  Receipt Date: 20220426
  Transmission Date: 20220720
  Serious: Yes (Death, Hospitalization, Other)
  Sender: FDA-Public Use
  Company Number: US-ACADIA PHARMACEUTICALS INC.-ACA-2022-PIM-000635

PATIENT
  Age: 89 Year
  Sex: Male

DRUGS (8)
  1. NUPLAZID [Suspect]
     Active Substance: PIMAVANSERIN TARTRATE
     Indication: Parkinson^s disease psychosis
     Dosage: 34 MILLIGRAM, QD
     Route: 048
     Dates: start: 20191230
  2. NUPLAZID [Suspect]
     Active Substance: PIMAVANSERIN TARTRATE
     Indication: Hallucination
     Dosage: 34 MILLIGRAM, QD
     Route: 048
     Dates: start: 20200521, end: 20220125
  3. NUPLAZID [Suspect]
     Active Substance: PIMAVANSERIN TARTRATE
     Indication: Delusion
     Dosage: 34 MILLIGRAM, QD
     Route: 048
     Dates: end: 20220215
  4. LYRICA [Concomitant]
     Active Substance: PREGABALIN
     Dosage: 75 MG BID
     Dates: start: 20200331, end: 20220211
  5. TRAMADOL [Concomitant]
     Active Substance: TRAMADOL
     Dosage: 50 MG BID
     Dates: start: 20200331, end: 20220211
  6. SEROQUEL [Concomitant]
     Active Substance: QUETIAPINE FUMARATE
     Dosage: 25 (UNKNOWN UNITS) BID
     Dates: start: 20200331
  7. XARELTO [Concomitant]
     Active Substance: RIVAROXABAN
     Dosage: 2.5 MG BID
     Dates: start: 20200331, end: 20220211
  8. HYDROCODONE [Concomitant]
     Active Substance: HYDROCODONE
     Dosage: 16/325
     Dates: start: 20200721, end: 20220211

REACTIONS (1)
  - COVID-19 pneumonia [Recovered/Resolved]

NARRATIVE: CASE EVENT DATE: 20220125
